FAERS Safety Report 23718662 (Version 1)
Quarter: 2024Q2

REPORT INFORMATION
  Report Type: Spontaneous
  Country: US (occurrence: None)
  Receive Date: 20240406
  Receipt Date: 20240406
  Transmission Date: 20240716
  Serious: Yes (Death)
  Sender: FDA-Public Use
  Company Number: None

PATIENT
  Age: 15 Year
  Sex: Male
  Weight: 72.8 kg

DRUGS (9)
  1. CALASPARGASE PEGOL-MKNL [Suspect]
     Active Substance: CALASPARGASE PEGOL-MKNL
  2. CYTARABINE [Suspect]
     Active Substance: CYTARABINE
     Dates: start: 20240316
  3. DEXAMETHASONE [Suspect]
     Active Substance: DEXAMETHASONE
     Dates: end: 20240317
  4. LEUCOVORIN CALCIUM [Suspect]
     Active Substance: LEUCOVORIN CALCIUM
  5. LEUCOVORIN CALCIUM [Suspect]
     Active Substance: LEUCOVORIN CALCIUM
  6. MERCAPTOPURINE [Suspect]
     Active Substance: MERCAPTOPURINE
  7. METHOTREXATE [Suspect]
     Active Substance: METHOTREXATE
  8. IMATINIB [Suspect]
     Active Substance: IMATINIB
  9. VINCRISTINE SULFATE [Suspect]
     Active Substance: VINCRISTINE SULFATE

REACTIONS (6)
  - Influenza [None]
  - Myelosuppression [None]
  - Septic shock [None]
  - Treatment failure [None]
  - Multiple organ dysfunction syndrome [None]
  - Disseminated intravascular coagulation [None]

NARRATIVE: CASE EVENT DATE: 20240318
